FAERS Safety Report 11235110 (Version 6)
Quarter: 2015Q4

REPORT INFORMATION
  Report Type: Spontaneous
  Country: US (occurrence: US)
  Receive Date: 20150702
  Receipt Date: 20151211
  Transmission Date: 20160304
  Serious: Yes (Hospitalization, Other)
  Sender: FDA-Public Use
  Company Number: US-009507513-1507USA000972

PATIENT
  Sex: Female
  Weight: 60.32 kg

DRUGS (7)
  1. FOSAMAX [Suspect]
     Active Substance: ALENDRONATE SODIUM
     Indication: OSTEOPOROSIS PROPHYLAXIS
     Dosage: UNK
     Route: 048
     Dates: start: 201210
  2. ALENDRONATE SODIUM. [Suspect]
     Active Substance: ALENDRONATE SODIUM
     Dosage: 70 MG, UNK
     Dates: start: 20080229, end: 20120217
  3. PAROXETINE [Concomitant]
     Active Substance: PAROXETINE\PAROXETINE HYDROCHLORIDE
     Indication: MULTIPLE SCLEROSIS
     Dosage: 30 MG, QD
     Route: 048
     Dates: start: 1990
  4. CARBAMAZEPINE. [Concomitant]
     Active Substance: CARBAMAZEPINE
     Indication: MULTIPLE SCLEROSIS
     Dosage: UNK
     Route: 048
     Dates: start: 1990
  5. FOSAMAX [Suspect]
     Active Substance: ALENDRONATE SODIUM
     Indication: OSTEOPENIA
     Dosage: 70 MG, UNKNOWN
     Route: 048
     Dates: start: 20051014, end: 20120219
  6. NEURONTIN [Concomitant]
     Active Substance: GABAPENTIN
     Indication: MULTIPLE SCLEROSIS
     Dosage: 600 MG, TID
     Route: 048
     Dates: start: 1990
  7. GABAPENTIN. [Concomitant]
     Active Substance: GABAPENTIN
     Indication: MULTIPLE SCLEROSIS
     Dosage: 300 MG, TID
     Route: 048
     Dates: start: 1990

REACTIONS (14)
  - Impaired healing [Unknown]
  - Vitamin D deficiency [Unknown]
  - Hypertension [Unknown]
  - Anxiety disorder [Recovered/Resolved]
  - Drug ineffective [Unknown]
  - Femur fracture [Unknown]
  - Haemangioma [Unknown]
  - Trigeminal neuralgia [Unknown]
  - Bone disorder [Unknown]
  - Malabsorption [Unknown]
  - Calcium deficiency [Unknown]
  - Osteoarthritis [Unknown]
  - Bundle branch block left [Unknown]
  - Cervical polyp [Unknown]

NARRATIVE: CASE EVENT DATE: 2010
